FAERS Safety Report 20043239 (Version 4)
Quarter: 2022Q3

REPORT INFORMATION
  Report Type: Report from Study
  Country: JP (occurrence: JP)
  Receive Date: 20211108
  Receipt Date: 20220712
  Transmission Date: 20221026
  Serious: Yes (Death, Other)
  Sender: FDA-Public Use
  Company Number: JP-TAKEDA-2021TJP112718

PATIENT
  Age: 62 Year
  Sex: Male
  Weight: 58.5 kg

DRUGS (6)
  1. LEUPROLIDE ACETATE [Suspect]
     Active Substance: LEUPROLIDE ACETATE
     Indication: Bulbospinal muscular atrophy congenital
     Dosage: 11.25 MILLIGRAM, Q3MONTHS
     Route: 058
     Dates: start: 20170929
  2. DIMETHICONE [Concomitant]
     Active Substance: DIMETHICONE
     Indication: Constipation
     Dosage: 120 MILLIGRAM
     Route: 065
  3. DIMETHICONE [Concomitant]
     Active Substance: DIMETHICONE
     Indication: Chronic gastritis
  4. DIMETHICONE [Concomitant]
     Active Substance: DIMETHICONE
     Indication: Flatulence
  5. MAGNESIUM OXIDE [Concomitant]
     Active Substance: MAGNESIUM OXIDE
     Indication: Product used for unknown indication
     Dosage: 990 MILLIGRAM
     Route: 065
     Dates: start: 20171222
  6. ALOSENN [Concomitant]
     Indication: Product used for unknown indication
     Dosage: 0.5 GRAM
     Route: 065
     Dates: start: 20180323, end: 20190823

REACTIONS (2)
  - Death [Fatal]
  - Spinal compression fracture [Not Recovered/Not Resolved]

NARRATIVE: CASE EVENT DATE: 20190701
